FAERS Safety Report 17870800 (Version 1)
Quarter: 2020Q2

REPORT INFORMATION
  Report Type: Spontaneous
  Country: US (occurrence: US)
  Receive Date: 20200607
  Receipt Date: 20200607
  Transmission Date: 20200714
  Serious: No
  Sender: FDA-Public Use
  Company Number: None

PATIENT
  Age: 55 Year
  Sex: Male
  Weight: 126 kg

DRUGS (1)
  1. TRADJENTA [Suspect]
     Active Substance: LINAGLIPTIN
     Indication: BLOOD GLUCOSE INCREASED
     Dosage: ?          QUANTITY:30 TABLET(S);?
     Route: 048

REACTIONS (8)
  - Poor quality product administered [None]
  - Product complaint [None]
  - Product contamination physical [None]
  - Manufacturing process control procedure issue [None]
  - Haemorrhage [None]
  - Product packaging issue [None]
  - Skin laceration [None]
  - Accidental exposure to product packaging [None]

NARRATIVE: CASE EVENT DATE: 20200606
